FAERS Safety Report 8906715 (Version 2)
Quarter: 2013Q2

REPORT INFORMATION
  Report Type: Report from Study
  Country: JP (occurrence: JP)
  Receive Date: 20121114
  Receipt Date: 20130405
  Transmission Date: 20140414
  Serious: Yes (Life-Threatening, Hospitalization, Other)
  Sender: FDA-Public Use
  Company Number: JP-GENZYME-THYM-1002974

PATIENT
  Age: 66 Year
  Sex: Male
  Weight: 73 kg

DRUGS (25)
  1. THYMOGLOBULIN [Suspect]
     Indication: APLASTIC ANAEMIA
     Dosage: 175 MG, QD
     Route: 042
     Dates: start: 20110511, end: 20110515
  2. CICLOSPORIN [Concomitant]
     Indication: APLASTIC ANAEMIA
     Dosage: UNK
     Route: 065
     Dates: start: 20110427
  3. FLUCONAZOL [Concomitant]
     Indication: PROPHYLAXIS
     Dosage: UNK
     Route: 065
     Dates: start: 20110509, end: 20110830
  4. BACTRIM [Concomitant]
     Indication: PROPHYLAXIS
     Dosage: UNK
     Route: 065
     Dates: start: 20110509
  5. VALACICLOVIR [Concomitant]
     Indication: PROPHYLAXIS
     Dosage: UNK
     Route: 065
     Dates: start: 20110503, end: 20110513
  6. VALACICLOVIR [Concomitant]
     Dosage: UNK
     Dates: start: 20110525, end: 20110531
  7. VALACICLOVIR [Concomitant]
     Dosage: UNK
     Dates: start: 20110618, end: 20110830
  8. DIPHENHYDRAMINE TANNATE [Concomitant]
     Indication: PREMEDICATION
     Dosage: UNK
     Route: 065
     Dates: start: 20110511, end: 20110515
  9. ACETAMINOPHEN [Concomitant]
     Indication: PREMEDICATION
     Dosage: UNK
     Route: 065
     Dates: start: 20110511, end: 20110515
  10. LANSOPRAZOLE [Concomitant]
     Indication: PROPHYLAXIS
     Dosage: UNK
     Dates: start: 20110511, end: 20110617
  11. LANSOPRAZOLE [Concomitant]
     Dosage: UNK
     Dates: start: 20110701, end: 20110927
  12. LEVOFLOXACIN [Concomitant]
     Indication: PROPHYLAXIS
     Dosage: UNK
     Route: 065
     Dates: start: 20110516, end: 20110526
  13. LEVOFLOXACIN [Concomitant]
     Dosage: UNK
     Route: 065
     Dates: start: 20110707, end: 20110830
  14. LEVOFLOXACIN [Concomitant]
     Dosage: UNK
     Route: 065
     Dates: start: 20111026
  15. PREDNISOLONE [Concomitant]
     Indication: PREMEDICATION
     Dosage: UNK
     Route: 065
     Dates: start: 20110516, end: 20110614
  16. TEPRENONE [Concomitant]
     Indication: PROPHYLAXIS
     Dosage: UNK
     Route: 065
     Dates: start: 20110518, end: 20110616
  17. SENNOSIDE [Concomitant]
     Indication: CONSTIPATION
     Dosage: UNK
     Route: 065
     Dates: start: 20110605, end: 20110608
  18. INSULIN [Concomitant]
     Indication: DIABETES MELLITUS
     Dosage: UNK
     Route: 065
     Dates: start: 20110619, end: 20110629
  19. METHYLPREDNISOLONE SODIUM SUCCINATE [Concomitant]
     Indication: PROPHYLAXIS
     Dosage: UNK
     Route: 065
     Dates: start: 20110511, end: 20110515
  20. METHYLPREDNISOLONE SODIUM SUCCINATE [Concomitant]
     Dosage: UNK
     Route: 065
     Dates: start: 20110621, end: 20110629
  21. DEFERASIROX [Concomitant]
     Indication: APLASTIC ANAEMIA
     Dosage: UNK
     Route: 065
     Dates: start: 20110805
  22. AMPHOTERICIN B [Concomitant]
     Indication: GASTRITIS
     Dosage: UNK
     Dates: start: 20110914, end: 20111011
  23. CEFOTAXIME SODIUM [Concomitant]
     Indication: PNEUMONIA
     Dosage: UNK
     Dates: start: 20110503, end: 20110515
  24. RANITIDINE HYDROCHLORIDE [Concomitant]
     Indication: PROPHYLAXIS
     Dosage: UNK
     Route: 065
     Dates: start: 20110618, end: 20110630
  25. RANITIDINE HYDROCHLORIDE [Concomitant]
     Dosage: UNK
     Route: 065
     Dates: start: 20110928, end: 20111025

REACTIONS (7)
  - Renal failure acute [Recovered/Resolved]
  - Haemochromatosis [Unknown]
  - Urinary tract infection staphylococcal [Recovered/Resolved]
  - Pneumonia [Recovered/Resolved]
  - Calculus urinary [Recovered/Resolved]
  - Hypertension [Not Recovered/Not Resolved]
  - Lymphocyte count decreased [Recovered/Resolved]
